FAERS Safety Report 7648448-6 (Version None)
Quarter: 2011Q3

REPORT INFORMATION
  Report Type: 
  Country: None (occurrence: None)
  Receive Date: 20110801
  Receipt Date: 20110713
  Transmission Date: 20111222
  Serious: Yes (Other)
  Sender: FDA-Public Use
  Company Number: JP-BAYER-2011-061026

PATIENT
  Age: 27 Year
  Sex: Female

DRUGS (4)
  1. ASPIRIN [Suspect]
     Route: 048
  2. HERBAL PREPARATION [Interacting]
     Dosage: 20 G, ONCE
  3. ASPIRIN [Interacting]
     Dosage: 1 G, ONCE
  4. HERBAL PREPARATION [Interacting]
     Route: 061

REACTIONS (1)
  - ANAPHYLACTIC REACTION [None]
